FAERS Safety Report 4883163-3 (Version None)
Quarter: 2006Q1

REPORT INFORMATION
  Report Type: 
  Country: None (occurrence: None)
  Receive Date: 20060117
  Receipt Date: 20060117
  Transmission Date: 20060701
  Serious: No
  Sender: FDA-Public Use
  Company Number: None

PATIENT
  Sex: Male
  Weight: 81.6475 kg

DRUGS (2)
  1. LEVAQUIN [Suspect]
     Indication: BRONCHITIS
     Dosage: 750MG  DAILY  PO
     Route: 048
     Dates: start: 20051202, end: 20051209
  2. HYDROCHLOROTHIAZIDE [Suspect]
     Indication: HYPERTENSION
     Dosage: 25MG  DAILY  PO
     Route: 048
     Dates: start: 20051202, end: 20051202

REACTIONS (4)
  - ABNORMAL DREAMS [None]
  - ILIOTIBIAL BAND SYNDROME [None]
  - INSOMNIA [None]
  - TENDON DISORDER [None]
